FAERS Safety Report 9068972 (Version 1)
Quarter: 2013Q1

REPORT INFORMATION
  Report Type: Spontaneous
  Country: JP (occurrence: JP)
  Receive Date: 20130215
  Receipt Date: 20130215
  Transmission Date: 20140127
  Serious: Yes (Other)
  Sender: FDA-Public Use
  Company Number: JP-ASTELLAS-2013JP001489

PATIENT
  Age: 51 Year
  Sex: Female

DRUGS (3)
  1. PROGRAF [Suspect]
     Indication: LUPUS NEPHRITIS
     Dosage: 3 MG, UNKNOWN/D
     Route: 048
  2. BETAMETHASONE [Concomitant]
     Indication: LUPUS NEPHRITIS
     Dosage: 10 MG, UID/QD
     Route: 034
  3. CYCLOPHOSPHAMIDE [Concomitant]
     Indication: LUPUS NEPHRITIS
     Dosage: UNK
     Route: 041

REACTIONS (2)
  - Drug ineffective [Unknown]
  - Lupus nephritis [Unknown]
